FAERS Safety Report 7794102-X (Version None)
Quarter: 2011Q4

REPORT INFORMATION
  Report Type: 
  Country: None (occurrence: None)
  Receive Date: 20111004
  Receipt Date: 20110922
  Transmission Date: 20120403
  Serious: Yes (Other)
  Sender: FDA-Public Use
  Company Number: ES-JNJFOC-20110303244

PATIENT
  Age: 64 Year
  Sex: Female
  Weight: 83 kg

DRUGS (14)
  1. CALCIUM CARBONATE [Concomitant]
  2. INACID [Concomitant]
  3. PHENOBARBITAL TAB [Concomitant]
  4. REMICADE [Suspect]
     Dosage: 2 DOSES
     Route: 042
     Dates: start: 20110211, end: 20110225
  5. REMICADE [Suspect]
     Route: 042
     Dates: start: 20101101
  6. OPIREN [Concomitant]
  7. REMICADE [Suspect]
     Indication: PSORIATIC ARTHROPATHY
     Route: 042
     Dates: end: 20100601
  8. PREDNISONE [Concomitant]
  9. SUMIAL [Concomitant]
  10. ATROVENT [Concomitant]
  11. IBUPROFEN [Concomitant]
  12. REMICADE [Suspect]
     Dosage: 2ND INFUSION
     Route: 042
     Dates: start: 20100306
  13. REMICADE [Suspect]
     Route: 042
     Dates: start: 20100101
  14. VENLAFAXINE HCL [Concomitant]

REACTIONS (11)
  - PAIN [None]
  - HYPERHIDROSIS [None]
  - VOMITING [None]
  - MALAISE [None]
  - MUSCLE RIGIDITY [None]
  - DYSPNOEA [None]
  - JOINT CONTRACTURE [None]
  - HYPOTENSION [None]
  - TACHYCARDIA [None]
  - INFUSION RELATED REACTION [None]
  - HEADACHE [None]
